FAERS Safety Report 9752214 (Version 1)
Quarter: 2013Q4

REPORT INFORMATION
  Report Type: Spontaneous
  Country: BR (occurrence: BR)
  Receive Date: 20131213
  Receipt Date: 20131213
  Transmission Date: 20140711
  Serious: Yes (Hospitalization, Other)
  Sender: FDA-Public Use
  Company Number: BR-SA-2013SA126839

PATIENT
  Age: 66 Year
  Sex: Male
  Weight: 53 kg

DRUGS (8)
  1. LANTUS [Suspect]
     Indication: DIABETES MELLITUS
     Route: 058
     Dates: start: 2008
  2. APIDRA SOLOSTAR [Suspect]
     Indication: DIABETES MELLITUS
     Route: 065
     Dates: start: 201302
  3. SOLOSTAR [Concomitant]
     Dates: start: 201302
  4. ALPRAZOLAM [Concomitant]
     Indication: SLEEP DISORDER
     Dates: start: 2008
  5. PROPRANOLOL [Concomitant]
     Indication: HYPERTENSION
     Dates: start: 2005
  6. AAS [Concomitant]
     Indication: ANTICOAGULANT THERAPY
     Dates: start: 2005
  7. LOSARTAN POTASSIUM [Concomitant]
     Indication: HYPERTENSION
     Dates: start: 2005
  8. SIMVASTATIN [Concomitant]
     Indication: CARDIAC DISORDER
     Dates: start: 2005

REACTIONS (4)
  - Carotid artery occlusion [Recovering/Resolving]
  - Pneumonia [Unknown]
  - Cerebrovascular accident [Recovering/Resolving]
  - Faecal incontinence [Not Recovered/Not Resolved]
